FAERS Safety Report 9370876 (Version 1)
Quarter: 2013Q2

REPORT INFORMATION
  Report Type: Spontaneous
  Country: TW (occurrence: TW)
  Receive Date: 20130626
  Receipt Date: 20130626
  Transmission Date: 20140414
  Serious: Yes (Hospitalization, Disabling)
  Sender: FDA-Public Use
  Company Number: TW-ROCHE-324902

PATIENT
  Age: 43 Year
  Sex: Male

DRUGS (5)
  1. ACTILYSE [Suspect]
     Indication: ACUTE MYOCARDIAL INFARCTION
     Route: 042
  2. HEPARIN [Suspect]
     Indication: ACUTE MYOCARDIAL INFARCTION
     Dosage: BOLUS INJECTION.
     Route: 042
  3. HEPARIN [Suspect]
     Indication: CORONARY ANGIOPLASTY
     Route: 042
  4. HEPARIN [Suspect]
     Dosage: BOLUS INJECTION BEFORE PTCA
     Route: 042
  5. FRAXIPARIN [Suspect]
     Indication: CORONARY ANGIOPLASTY
     Dosage: FOLLOWING PTCA.
     Route: 058

REACTIONS (3)
  - Spinal epidural haematoma [Recovered/Resolved with Sequelae]
  - Spinal cord compression [Recovered/Resolved with Sequelae]
  - Gingival bleeding [Unknown]
